FAERS Safety Report 10098641 (Version 1)
Quarter: 2014Q2

REPORT INFORMATION
  Report Type: Spontaneous
  Country: US (occurrence: US)
  Receive Date: 20140423
  Receipt Date: 20140423
  Transmission Date: 20141212
  Serious: Yes (Other)
  Sender: FDA-Public Use
  Company Number: US-ASTRAZENECA-2014SE26505

PATIENT
  Age: 54 Year
  Sex: Female
  Weight: 56.2 kg

DRUGS (12)
  1. ZOMIG [Suspect]
     Route: 048
  2. AMBIEN [Suspect]
     Route: 065
  3. AMPYRA [Suspect]
     Indication: MULTIPLE SCLEROSIS
     Route: 048
     Dates: start: 20120710
  4. AMPYRA [Suspect]
     Indication: GAIT DISTURBANCE
     Route: 048
     Dates: start: 20120710
  5. AMPYRA [Suspect]
     Indication: ATAXIA
     Route: 048
     Dates: start: 20120710
  6. GLENNYA [Suspect]
     Route: 065
  7. COPAXONE [Concomitant]
  8. FOSAMAX [Concomitant]
  9. GABAPENTIN [Concomitant]
  10. VITAMIN D [Concomitant]
  11. CELEXA [Concomitant]
  12. MIRALAX [Concomitant]

REACTIONS (3)
  - Multiple sclerosis relapse [Not Recovered/Not Resolved]
  - Liver function test abnormal [Unknown]
  - Lymphocyte percentage abnormal [Unknown]
